FAERS Safety Report 4298933-2 (Version None)
Quarter: 2004Q1

REPORT INFORMATION
  Report Type: 
  Country: None (occurrence: None)
  Receive Date: 20040217
  Receipt Date: 20040205
  Transmission Date: 20041129
  Serious: Yes (Hospitalization)
  Sender: FDA-Public Use
  Company Number: HQWYE837705FEB04

PATIENT
  Age: 72 Year
  Sex: Female

DRUGS (2)
  1. ADVIL [Suspect]
     Indication: OSTEOARTHRITIS
     Dosage: ORAL
     Route: 048
     Dates: end: 20010519
  2. ADVIL [Suspect]
     Indication: PAIN
     Dosage: ORAL
     Route: 048
     Dates: end: 20010519

REACTIONS (2)
  - ARTHRITIS [None]
  - OESOPHAGITIS [None]
